FAERS Safety Report 11148963 (Version 6)
Quarter: 2018Q2

REPORT INFORMATION
  Report Type: Spontaneous
  Country: FR (occurrence: FR)
  Receive Date: 20150529
  Receipt Date: 20180503
  Transmission Date: 20180711
  Serious: Yes (Hospitalization, Disabling, Congenital Anomaly)
  Sender: FDA-Public Use
  Company Number: FR-ABBVIE-15P-056-1400012-00

PATIENT
  Sex: Female

DRUGS (1)
  1. DEPAKINE [Suspect]
     Active Substance: VALPROATE SODIUM
     Indication: MATERNAL EXPOSURE TIMING UNSPECIFIED
     Route: 064

REACTIONS (25)
  - Hypotonia [Unknown]
  - Movement disorder [Unknown]
  - Attention deficit/hyperactivity disorder [Not Recovered/Not Resolved]
  - Myopia [Unknown]
  - Finger deformity [Unknown]
  - Foetal growth restriction [Unknown]
  - Hypotonia [Unknown]
  - Hypertelorism of orbit [Not Recovered/Not Resolved]
  - Foetal exposure during pregnancy [Unknown]
  - Psychomotor skills impaired [Not Recovered/Not Resolved]
  - Migraine [Unknown]
  - Dysmorphism [Not Recovered/Not Resolved]
  - Astigmatism [Unknown]
  - Premature baby [Unknown]
  - Fatigue [Unknown]
  - Disturbance in attention [Unknown]
  - Dysgraphia [Unknown]
  - Ear infection [Unknown]
  - Affect lability [Unknown]
  - Coordination abnormal [Unknown]
  - Amblyopia [Unknown]
  - Memory impairment [Unknown]
  - Low birth weight baby [Unknown]
  - Growth retardation [Unknown]
  - Educational problem [Unknown]

NARRATIVE: CASE EVENT DATE: 2008
